FAERS Safety Report 19208414 (Version 2)
Quarter: 2021Q2

REPORT INFORMATION
  Report Type: Spontaneous
  Country: CN (occurrence: CN)
  Receive Date: 20210503
  Receipt Date: 20210506
  Transmission Date: 20210717
  Serious: Yes (Other)
  Sender: FDA-Public Use
  Company Number: CN-PFIZER INC-2021444765

PATIENT
  Age: 63 Year
  Sex: Female
  Weight: 52.7 kg

DRUGS (4)
  1. CYTOSAR [Suspect]
     Active Substance: CYTARABINE
     Indication: NEOPLASM
  2. SODIUM CHLORIDE. [Concomitant]
     Active Substance: SODIUM CHLORIDE
     Indication: CHEMOTHERAPY
     Dosage: 250.000 ML, 2X/DAY
     Route: 041
     Dates: start: 20210412, end: 20210412
  3. CYTOSAR [Suspect]
     Active Substance: CYTARABINE
     Indication: CHEMOTHERAPY
     Dosage: 0.100 G, 2X/DAY
     Route: 041
     Dates: start: 20210410, end: 20210412
  4. SODIUM CHLORIDE. [Concomitant]
     Active Substance: SODIUM CHLORIDE
     Indication: NEOPLASM

REACTIONS (12)
  - Pyrexia [Recovering/Resolving]
  - White blood cell count increased [Unknown]
  - Platelet count decreased [Unknown]
  - Cough [Unknown]
  - Psychiatric symptom [Unknown]
  - Haemoglobin decreased [Unknown]
  - Dizziness [Unknown]
  - Nausea [Unknown]
  - Decreased appetite [Unknown]
  - Fatigue [Unknown]
  - Red blood cell count decreased [Unknown]
  - Vomiting [Unknown]

NARRATIVE: CASE EVENT DATE: 20210412
